FAERS Safety Report 17871688 (Version 1)
Quarter: 2020Q3

REPORT INFORMATION
  Report Type: Spontaneous
  Country: US (occurrence: US)
  Receive Date: 20200608
  Receipt Date: 20200608
  Transmission Date: 20201104
  Serious: No
  Sender: FDA-Public Use
  Company Number: None

PATIENT
  Age: 80 Year
  Sex: Female
  Weight: 68 kg

DRUGS (1)
  1. BROLUCIZUMAB. [Suspect]
     Active Substance: BROLUCIZUMAB
     Indication: MACULAR DEGENERATION
     Route: 031
     Dates: start: 20191120, end: 20191120

REACTIONS (1)
  - Iritis [None]

NARRATIVE: CASE EVENT DATE: 20191120
